FAERS Safety Report 8977607 (Version 5)
Quarter: 2013Q4

REPORT INFORMATION
  Report Type: Spontaneous
  Country: US (occurrence: US)
  Receive Date: 20121220
  Receipt Date: 20131127
  Transmission Date: 20140711
  Serious: Yes (Hospitalization)
  Sender: FDA-Public Use
  Company Number: US-GLAXOSMITHKLINE-A1005942A

PATIENT
  Age: 18 Year
  Sex: Female

DRUGS (6)
  1. FLOLAN [Suspect]
     Indication: COR PULMONALE CHRONIC
     Dosage: 17.5NGKM CONTINUOUS
     Route: 042
     Dates: start: 20121115
  2. COUMADIN [Concomitant]
  3. LASIX [Concomitant]
  4. TRACLEER [Concomitant]
  5. REVATIO [Concomitant]
  6. REMODULIN [Concomitant]
     Route: 042

REACTIONS (9)
  - Fluid retention [Not Recovered/Not Resolved]
  - Headache [Recovered/Resolved]
  - Chest pain [Unknown]
  - Epistaxis [Unknown]
  - Mouth haemorrhage [Unknown]
  - Dyspnoea [Unknown]
  - Decreased appetite [Unknown]
  - Weight decreased [Unknown]
  - Investigation [Not Recovered/Not Resolved]
